FAERS Safety Report 18243222 (Version 1)
Quarter: 2020Q3

REPORT INFORMATION
  Report Type: Report from Study
  Country: US (occurrence: US)
  Receive Date: 20200908
  Receipt Date: 20200908
  Transmission Date: 20201103
  Serious: Yes (Other)
  Sender: FDA-Public Use
  Company Number: US-JNJFOC-20200904543

PATIENT
  Age: 52 Year
  Sex: Female

DRUGS (5)
  1. SPORANOX [Suspect]
     Active Substance: ITRACONAZOLE
     Indication: BLASTOMYCOSIS
     Dosage: 200 MG EVERY 8 HOURS FOR 3 DAYS,
     Route: 048
  2. SPORANOX [Suspect]
     Active Substance: ITRACONAZOLE
     Route: 048
  3. SPORANOX [Suspect]
     Active Substance: ITRACONAZOLE
     Dosage: 200 MG IN THE MORNING AND 100 IN THE EVENING
     Route: 048
  4. SPORANOX [Suspect]
     Active Substance: ITRACONAZOLE
     Route: 048
  5. SPORANOX [Suspect]
     Active Substance: ITRACONAZOLE
     Route: 048

REACTIONS (7)
  - Respiratory acidosis [Unknown]
  - Blood pressure increased [Recovered/Resolved]
  - Metabolic acidosis [Recovered/Resolved]
  - Decreased appetite [Unknown]
  - Cardiac failure [Unknown]
  - Hypokalaemia [Recovered/Resolved]
  - Mouth ulceration [Unknown]
